FAERS Safety Report 5781450-8 (Version None)
Quarter: 2008Q2

REPORT INFORMATION
  Report Type: 
  Country: None (occurrence: None)
  Receive Date: 20080623
  Receipt Date: 20080612
  Transmission Date: 20081010
  Serious: Yes (Other)
  Sender: FDA-Public Use
  Company Number: CA-JNJFOC-20080603874

PATIENT
  Age: 8 Decade
  Sex: Female

DRUGS (18)
  1. REMICADE [Suspect]
     Indication: DRUG USE FOR UNKNOWN INDICATION
     Route: 042
  2. SYNTHROID [Concomitant]
     Route: 048
  3. PMS-ISONIAZIDE [Concomitant]
  4. MIACALCIN [Concomitant]
     Route: 045
  5. AVAPRO [Concomitant]
  6. METHOTREXATE [Concomitant]
     Route: 058
  7. PMS-FERROUS SULFATE [Concomitant]
     Route: 048
  8. CALCITE + VIT D [Concomitant]
     Route: 048
  9. PMS-DOCUSATE SODIUM [Concomitant]
     Route: 048
  10. PMS-DICLOFENAC SR [Concomitant]
     Route: 048
  11. PANTOPRAZOLE SODIUM [Concomitant]
  12. PREMARIN [Concomitant]
     Route: 048
  13. NOVO-QUININE [Concomitant]
     Route: 048
  14. ADALAT CC [Concomitant]
     Route: 048
  15. APO-FOLIC [Concomitant]
     Route: 048
  16. PENNSAID [Concomitant]
     Route: 061
  17. EPREX [Concomitant]
     Route: 050
  18. ORACORT [Concomitant]
     Route: 061

REACTIONS (3)
  - BLOOD PRESSURE INCREASED [None]
  - FALL [None]
  - HYPOKINESIA [None]
